FAERS Safety Report 14661818 (Version 1)
Quarter: 2018Q1

REPORT INFORMATION
  Report Type: Spontaneous
  Country: US (occurrence: US)
  Receive Date: 20180318
  Receipt Date: 20180318
  Transmission Date: 20180509
  Serious: Yes (Other)
  Sender: FDA-Public Use
  Company Number: None

PATIENT
  Age: 39 Year
  Sex: Female

DRUGS (1)
  1. KISQALI [Suspect]
     Active Substance: RIBOCICLIB

REACTIONS (4)
  - Dyspnoea [None]
  - Oxygen saturation decreased [None]
  - Feeling abnormal [None]
  - Skin discolouration [None]

NARRATIVE: CASE EVENT DATE: 20180317
